FAERS Safety Report 6517811-9 (Version None)
Quarter: 2009Q4

REPORT INFORMATION
  Report Type: 
  Country: None (occurrence: None)
  Receive Date: 20091224
  Receipt Date: 20091223
  Transmission Date: 20100525
  Serious: Yes (Other)
  Sender: FDA-Public Use
  Company Number: US-PURDUE-USA-2009-0040833

PATIENT
  Age: 49 Year
  Sex: Female
  Weight: 86.168 kg

DRUGS (1)
  1. RYZOLT [Suspect]
     Indication: PAIN
     Dosage: 300 MG, DAILY
     Route: 048
     Dates: start: 20090818, end: 20090818

REACTIONS (3)
  - DRUG INTOLERANCE [None]
  - DRUG LEVEL INCREASED [None]
  - OVERDOSE [None]
